FAERS Safety Report 5953110-1 (Version None)
Quarter: 2008Q4

REPORT INFORMATION
  Report Type: 
  Country: None (occurrence: None)
  Receive Date: 20081114
  Receipt Date: 20081105
  Transmission Date: 20090506
  Serious: Yes (Hospitalization)
  Sender: FDA-Public Use
  Company Number: DE-JNJFOC-20081101517

PATIENT
  Age: 68 Year
  Sex: Female
  Weight: 42 kg

DRUGS (7)
  1. REMICADE [Suspect]
     Dosage: 3RD INFUSION AFTER RESTARTED THE 2ND TIME
     Route: 042
  2. REMICADE [Suspect]
     Dosage: 3RD INFUSION AFTER RESTARTED THE 2ND TIME
     Route: 042
  3. REMICADE [Suspect]
     Indication: ANKYLOSING SPONDYLITIS
     Dosage: 3RD INFUSION AFTER RESTARTED THE 2ND TIME
     Route: 042
  4. PREDNISONE TAB [Concomitant]
  5. TRAMADOL HCL [Concomitant]
     Indication: ANKYLOSING SPONDYLITIS
  6. DIAZEPAM [Concomitant]
  7. KREAN [Concomitant]
     Indication: PANCREATIC INSUFFICIENCY

REACTIONS (5)
  - ANKYLOSING SPONDYLITIS [None]
  - HEADACHE [None]
  - HYPERSENSITIVITY [None]
  - INFUSION RELATED REACTION [None]
  - LOSS OF CONSCIOUSNESS [None]
